FAERS Safety Report 5133452-2 (Version None)
Quarter: 2006Q4

REPORT INFORMATION
  Report Type: 
  Country: None (occurrence: None)
  Receive Date: 20061024
  Receipt Date: 20061011
  Transmission Date: 20070319
  Serious: Yes (Other)
  Sender: FDA-Public Use
  Company Number: PHNU2006DE03402

PATIENT
  Sex: Male

DRUGS (1)
  1. AREDIA [Suspect]
     Indication: PLASMACYTOMA

REACTIONS (3)
  - OSTEONECROSIS [None]
  - PRIMARY SEQUESTRUM [None]
  - SEQUESTRECTOMY [None]
